FAERS Safety Report 6979642-5 (Version None)
Quarter: 2010Q3

REPORT INFORMATION
  Report Type: 
  Country: None (occurrence: None)
  Receive Date: 20100910
  Receipt Date: 20100910
  Transmission Date: 20110219
  Serious: Yes (Life-Threatening, Disabling)
  Sender: FDA-Public Use
  Company Number: None

PATIENT
  Sex: Female
  Weight: 49.8957 kg

DRUGS (3)
  1. THORAZINE [Suspect]
     Indication: DEPRESSION
     Dosage: 10 DAYS PILLS + INJECTION AROUND OCT OR NOV. 1972
  2. STELAZINE [Suspect]
     Indication: DEPRESSION
     Dosage: 5 MG ONCE A DAY PILL FORM
     Dates: start: 19760101, end: 19830101
  3. TRIFLUOPERAZINE HCL [Suspect]
     Indication: DEPRESSION
     Dosage: 2 MG. ONCE A DAY PILL FORM
     Dates: start: 19860101, end: 20030101

REACTIONS (7)
  - BONE DISORDER [None]
  - MACULAR DEGENERATION [None]
  - PAIN [None]
  - SCOLIOSIS [None]
  - SKIN DISCOLOURATION [None]
  - SPINAL DISORDER [None]
  - SYSTEMIC LUPUS ERYTHEMATOSUS [None]
